FAERS Safety Report 20306310 (Version 1)
Quarter: 2022Q1

REPORT INFORMATION
  Report Type: Spontaneous
  Country: US (occurrence: None)
  Receive Date: 20220106
  Receipt Date: 20220106
  Transmission Date: 20220423
  Serious: Yes (Other)
  Sender: FDA-Public Use
  Company Number: None

PATIENT
  Age: 58 Year
  Sex: Female
  Weight: 86.63 kg

DRUGS (1)
  1. REGEN-COV [Suspect]
     Active Substance: CASIRIVIMAB\IMDEVIMAB
     Indication: COVID-19
     Dates: start: 20220106, end: 20220106

REACTIONS (4)
  - Feeling hot [None]
  - Blood pressure decreased [None]
  - Heart rate decreased [None]
  - Nausea [None]

NARRATIVE: CASE EVENT DATE: 20220106
